FAERS Safety Report 6810634-2 (Version None)
Quarter: 2010Q2

REPORT INFORMATION
  Report Type: 
  Country: None (occurrence: None)
  Receive Date: 20100630
  Receipt Date: 20100527
  Transmission Date: 20101027
  Serious: Yes (Hospitalization, Other)
  Sender: FDA-Public Use
  Company Number: PHHY2010FR39849

PATIENT
  Age: 54 Year
  Sex: Male

DRUGS (6)
  1. CYCLOSPORINE [Suspect]
     Indication: RENAL TRANSPLANT
  2. STEROIDS NOS [Suspect]
     Indication: RENAL TRANSPLANT
  3. MYCOPHENOLATE MOFETIL [Suspect]
     Indication: RENAL TRANSPLANT
     Dosage: 500 MG, BID
  4. SIROLIMUS [Concomitant]
     Dosage: 3 MG, DAILY
  5. PREDNISOLONE [Concomitant]
     Dosage: 5 MG, DAILY
  6. VALACYCLOVIR [Concomitant]

REACTIONS (9)
  - AGRANULOCYTOSIS [None]
  - BLOOD CREATININE INCREASED [None]
  - CYTOMEGALOVIRUS INFECTION [None]
  - KIDNEY TRANSPLANT REJECTION [None]
  - PNEUMOCYSTIS JIROVECI PNEUMONIA [None]
  - RENAL IMPAIRMENT [None]
  - SKIN CANCER [None]
  - SQUAMOUS CELL CARCINOMA [None]
  - SURGERY [None]
